FAERS Safety Report 4998636-2 (Version None)
Quarter: 2006Q2

REPORT INFORMATION
  Report Type: 
  Country: None (occurrence: None)
  Receive Date: 20060509
  Receipt Date: 20060427
  Transmission Date: 20061013
  Serious: Yes (Death)
  Sender: FDA-Public Use
  Company Number: GXKR2006TR02391

PATIENT
  Age: 22 Year
  Sex: Female

DRUGS (2)
  1. METHOTREXATE [Suspect]
     Indication: RHEUMATOID ARTHRITIS
     Dosage: 7.5 MG, QW, ORAL
     Route: 048
  2. PREDNISOLONE [Suspect]
     Indication: RHEUMATOID ARTHRITIS
     Dosage: 20 MG, QD, ORAL
     Route: 048

REACTIONS (24)
  - ASTHENIA [None]
  - BLOOD ALBUMIN DECREASED [None]
  - BLOOD CALCIUM DECREASED [None]
  - BLOOD PHOSPHORUS DECREASED [None]
  - BLOOD UREA DECREASED [None]
  - BODY TEMPERATURE INCREASED [None]
  - BREAST ATROPHY [None]
  - BREAST MASS [None]
  - CALCIPHYLAXIS [None]
  - CARBOHYDRATE ANTIGEN 15-3 INCREASED [None]
  - DIPLOPIA [None]
  - GENERAL PHYSICAL CONDITION ABNORMAL [None]
  - HAEMOGLOBIN DECREASED [None]
  - HEART RATE INCREASED [None]
  - JOINT DISLOCATION [None]
  - JOINT SWELLING [None]
  - OSTEOARTHRITIS [None]
  - OSTEOPOROSIS [None]
  - PAIN [None]
  - POLYARTHRITIS [None]
  - PSEUDOMONAL SEPSIS [None]
  - SUBCUTANEOUS NODULE [None]
  - VASCULAR CALCIFICATION [None]
  - WHITE BLOOD CELL COUNT INCREASED [None]
